FAERS Safety Report 8446003 (Version 2)
Quarter: 2015Q4

REPORT INFORMATION
  Report Type: Spontaneous
  Country: US (occurrence: US)
  Receive Date: 20120307
  Receipt Date: 20151006
  Transmission Date: 20160305
  Serious: Yes (Other)
  Sender: FDA-Public Use
  Company Number: US-ASTRAZENECA-2011SE15668

PATIENT
  Age: 42 Year
  Sex: Female

DRUGS (1)
  1. ZOMIG [Suspect]
     Active Substance: ZOLMITRIPTAN
     Indication: MIGRAINE
     Route: 048
     Dates: start: 2006

REACTIONS (4)
  - Migraine [Unknown]
  - Vomiting [Unknown]
  - Drug dose omission [Unknown]
  - Road traffic accident [Unknown]
